FAERS Safety Report 18664209 (Version 3)
Quarter: 2021Q1

REPORT INFORMATION
  Report Type: Spontaneous
  Country: GB (occurrence: GB)
  Receive Date: 20201225
  Receipt Date: 20210225
  Transmission Date: 20210419
  Serious: Yes (Other)
  Sender: FDA-Public Use
  Company Number: GB-BIOVITRUM-2020GB7865

PATIENT
  Age: 51 Year
  Sex: Male

DRUGS (36)
  1. ZOPICLONE [Concomitant]
     Active Substance: ZOPICLONE
  2. SILDENAFIL. [Concomitant]
     Active Substance: SILDENAFIL
  3. AMLODIPINE [Concomitant]
     Active Substance: AMLODIPINE BESYLATE
  4. CLINITAS [Concomitant]
     Dosage: 6.4
  5. GABAPENTIN. [Concomitant]
     Active Substance: GABAPENTIN
  6. ORFADIN [Suspect]
     Active Substance: NITISINONE
     Indication: ALKAPTONURIA
     Dates: start: 2014
  7. CO?CODAMOL 30 [Concomitant]
     Dosage: 30/500 ONE TABLET QDS
  8. GLUCOSAMINE [Concomitant]
     Active Substance: GLUCOSAMINE
  9. LIDOCAINE PLASTER [Concomitant]
     Dosage: PLASTER
  10. VERSATIS [Concomitant]
     Active Substance: LIDOCAINE
  11. COENZYME Q10 [Concomitant]
     Active Substance: DIETARY SUPPLEMENT\UBIDECARENONE
  12. TURMERIC [Concomitant]
     Active Substance: HERBALS\TURMERIC
  13. SAW PALMETTO [Concomitant]
     Active Substance: HERBALS\SAW PALMETTO
  14. ALENDRONIC ACID [Concomitant]
     Active Substance: ALENDRONIC ACID
  15. TRAMADOL. [Concomitant]
     Active Substance: TRAMADOL
  16. BORON [Concomitant]
     Active Substance: BORON
  17. N?ACETYL CYSTEINE [Concomitant]
     Active Substance: ACETYLCYSTEINE
  18. CITALOPRAM [Concomitant]
     Active Substance: CITALOPRAM HYDROBROMIDE
  19. ADCAL D3 [Concomitant]
     Active Substance: CALCIUM CARBONATE\CHOLECALCIFEROL
  20. PROBIOTIC [Concomitant]
     Active Substance: PROBIOTICS NOS
  21. NAPROXEN. [Concomitant]
     Active Substance: NAPROXEN
  22. KRILL OIL [Concomitant]
     Active Substance: DIETARY SUPPLEMENT\KRILL OIL
  23. OMEPRAZOLE. [Concomitant]
     Active Substance: OMEPRAZOLE
  24. L?ARGININE [Concomitant]
     Active Substance: ARGININE
  25. CHONDROITIN [Concomitant]
     Active Substance: CHONDROITIN
  26. METHYL PENIDATE [Concomitant]
  27. MULTI VIT [Concomitant]
     Active Substance: VITAMINS
  28. LINEAVI [Concomitant]
  29. VITAMIN D [Concomitant]
     Active Substance: VITAMIN D NOS
  30. VITAMIN C [Concomitant]
     Active Substance: ASCORBIC ACID
  31. TRAMADOL. [Concomitant]
     Active Substance: TRAMADOL
  32. PARACETAMOL [Concomitant]
     Active Substance: ACETAMINOPHEN
  33. SALAMOL INHALER [Concomitant]
  34. COLECALCIFEROL [Concomitant]
     Active Substance: CHOLECALCIFEROL
  35. AMITRYPTYLINE [Concomitant]
     Active Substance: AMITRIPTYLINE
  36. CALCIUM [Concomitant]
     Active Substance: CALCIUM

REACTIONS (3)
  - Lenticular opacities [Unknown]
  - Cataract [Unknown]
  - Amino acid level increased [Unknown]

NARRATIVE: CASE EVENT DATE: 2015
